FAERS Safety Report 25839370 (Version 2)
Quarter: 2025Q3

REPORT INFORMATION
  Report Type: Spontaneous
  Country: US (occurrence: US)
  Receive Date: 20250924
  Receipt Date: 20250929
  Transmission Date: 20251021
  Serious: No
  Sender: BIOVITRUM
  Company Number: US-BIOVITRUM-2025-US-011290

PATIENT
  Age: 66 Year
  Sex: Female

DRUGS (2)
  1. KINERET [Suspect]
     Active Substance: ANAKINRA
     Indication: Osteoarthritis
     Route: 058
     Dates: start: 20250729
  2. KINERET [Suspect]
     Active Substance: ANAKINRA
     Indication: Rheumatoid arthritis
     Route: 058

REACTIONS (10)
  - Oropharyngeal pain [Unknown]
  - Petechiae [Unknown]
  - Sciatica [Unknown]
  - Oral pain [Unknown]
  - Tenderness [Unknown]
  - Skin striae [Unknown]
  - Injection site pain [Not Recovered/Not Resolved]
  - Injection site urticaria [Recovered/Resolved]
  - Injection site erythema [Recovered/Resolved]
  - Injection site mass [Recovered/Resolved]
